FAERS Safety Report 7535344-8 (Version None)
Quarter: 2011Q2

REPORT INFORMATION
  Report Type: 
  Country: None (occurrence: None)
  Receive Date: 20110609
  Receipt Date: 20080410
  Transmission Date: 20111010
  Serious: Yes (Other)
  Sender: FDA-Public Use
  Company Number: PHFR2008GB01146

PATIENT
  Sex: Male

DRUGS (4)
  1. ORPHENADRINE CITRATE [Concomitant]
     Indication: EXTRAPYRAMIDAL DISORDER
     Dosage: 50 MG/DAILY
     Route: 048
     Dates: start: 20070312
  2. ASPIRIN [Concomitant]
     Dosage: 75 MG/DAILY
     Route: 048
  3. CLOZAPINE [Suspect]
     Indication: SCHIZOPHRENIA
     Dosage: 200 MG/DAILY
     Route: 048
     Dates: start: 20070115, end: 20080226
  4. MIRTAZAPINE [Concomitant]
     Indication: DEPRESSION
     Dosage: 30 MG/DAILY
     Route: 048

REACTIONS (7)
  - CEREBROVASCULAR ACCIDENT [None]
  - CONFUSIONAL STATE [None]
  - DISORIENTATION [None]
  - TRANSIENT ISCHAEMIC ATTACK [None]
  - ASTHENIA [None]
  - MENTAL DISORDER [None]
  - MALAISE [None]
